FAERS Safety Report 8408470-9 (Version None)
Quarter: 2012Q2

REPORT INFORMATION
  Report Type: 
  Country: None (occurrence: None)
  Receive Date: 20120604
  Receipt Date: 20120525
  Transmission Date: 20120825
  Serious: Yes (Hospitalization)
  Sender: FDA-Public Use
  Company Number: US-ABBOTT-12P-163-0939684-00

PATIENT
  Age: 32 Year
  Sex: Female
  Weight: 118 kg

DRUGS (2)
  1. SYNTHROID [Suspect]
     Indication: OBESITY
  2. SYNTHROID [Suspect]
     Indication: THYROID DISORDER
     Dates: start: 20120301

REACTIONS (4)
  - OFF LABEL USE [None]
  - LETHARGY [None]
  - CANDIDIASIS [None]
  - DIABETIC KETOACIDOSIS [None]
